FAERS Safety Report 26177474 (Version 1)
Quarter: 2025Q4

REPORT INFORMATION
  Report Type: Spontaneous
  Country: EU (occurrence: EU)
  Receive Date: 20251219
  Receipt Date: 20251219
  Transmission Date: 20260118
  Serious: Yes (Hospitalization, Other)
  Sender: AZURITY PHARMACEUTICALS
  Company Number: EU-AZURITY PHARMACEUTICALS, INC.-AZR202512-003872

PATIENT
  Age: 34 Year
  Sex: Female

DRUGS (3)
  1. TRIPTORELIN [Suspect]
     Active Substance: TRIPTORELIN
     Indication: Assisted reproductive technology
     Dosage: UNK
     Route: 065
  2. FOLLITROPIN\LUTROPIN ALFA [Suspect]
     Active Substance: FOLLITROPIN\LUTROPIN ALFA
     Indication: Assisted reproductive technology
     Dosage: UNK
     Route: 065
  3. GANIRELIX ACETATE [Suspect]
     Active Substance: GANIRELIX ACETATE
     Indication: Assisted reproductive technology
     Dosage: UNK
     Route: 065

REACTIONS (1)
  - Ovarian hyperstimulation syndrome [Recovered/Resolved]

NARRATIVE: CASE EVENT DATE: 20251117
